FAERS Safety Report 5961825-4 (Version None)
Quarter: 2008Q4

REPORT INFORMATION
  Report Type: 
  Country: None (occurrence: None)
  Receive Date: 20081121
  Receipt Date: 20071128
  Transmission Date: 20090506
  Serious: No
  Sender: FDA-Public Use
  Company Number: US-BRISTOL-MYERS SQUIBB COMPANY-13998125

PATIENT
  Age: 85 Year
  Sex: Female
  Weight: 63 kg

DRUGS (5)
  1. AVALIDE [Suspect]
     Indication: BLOOD PRESSURE
  2. IRBESARTAN AND HYDROCHLOROTHIAZIDE [Suspect]
     Indication: BLOOD PRESSURE
  3. GRAPESEED EXTRACT [Suspect]
  4. COENZYME Q10 [Suspect]
  5. COD LIVER OIL [Suspect]

REACTIONS (5)
  - ALOPECIA [None]
  - CONTUSION [None]
  - DIZZINESS [None]
  - OEDEMA [None]
  - PRURITUS [None]
